FAERS Safety Report 24692683 (Version 1)
Quarter: 2024Q4

REPORT INFORMATION
  Report Type: Spontaneous
  Country: CA (occurrence: CA)
  Receive Date: 20241203
  Receipt Date: 20241203
  Transmission Date: 20250114
  Serious: Yes (Other)
  Sender: PFIZER
  Company Number: CA-PFIZER INC-202400313340

PATIENT
  Age: 54 Year
  Sex: Male

DRUGS (1)
  1. RUXIENCE [Suspect]
     Active Substance: RITUXIMAB-PVVR
     Indication: Rheumatoid arthritis
     Dosage: 1 G EVERY 6 MONTH (DAY 1 AND 15)
     Route: 042
     Dates: start: 20240705, end: 20240718

REACTIONS (1)
  - Carpal tunnel syndrome [Unknown]

NARRATIVE: CASE EVENT DATE: 20240101
